FAERS Safety Report 5489581-7 (Version None)
Quarter: 2007Q4

REPORT INFORMATION
  Report Type: 
  Country: None (occurrence: None)
  Receive Date: 20071016
  Receipt Date: 20071016
  Transmission Date: 20080405
  Serious: Yes (Hospitalization)
  Sender: FDA-Public Use
  Company Number: None

PATIENT
  Age: 17 Year
  Sex: Female
  Weight: 78 kg

DRUGS (1)
  1. DEPACON [Suspect]
     Indication: CONVULSION
     Dosage: 2 - 6 MG/KG/HOUR IV DRIP
     Route: 041
     Dates: start: 20070929, end: 20071003

REACTIONS (1)
  - ENCEPHALOPATHY [None]
